FAERS Safety Report 5820035-1 (Version None)
Quarter: 2008Q3

REPORT INFORMATION
  Report Type: 
  Country: None (occurrence: None)
  Receive Date: 20080718
  Receipt Date: 20080718
  Transmission Date: 20090109
  Serious: Yes (Hospitalization)
  Sender: FDA-Public Use
  Company Number: None

PATIENT
  Sex: Female
  Weight: 59 kg

DRUGS (4)
  1. ABRAXANE [Suspect]
     Indication: ADENOCARCINOMA
     Dosage: 429 MG D1/EACH CYCLE 042
     Dates: start: 20080430, end: 20080521
  2. VANDETANIB [Suspect]
     Indication: ADENOCARCINOMA
     Dosage: 100 MG QD X 21 DAYS  047
     Dates: start: 20080430, end: 20080609
  3. ASPIRIN [Concomitant]
  4. IBUPROFEN TABLETS [Concomitant]

REACTIONS (3)
  - CEREBROVASCULAR ACCIDENT [None]
  - DISEASE PROGRESSION [None]
  - VISUAL IMPAIRMENT [None]
